FAERS Safety Report 20637696 (Version 1)
Quarter: 2022Q1

REPORT INFORMATION
  Report Type: Spontaneous
  Country: US (occurrence: None)
  Receive Date: 20220322
  Receipt Date: 20220322
  Transmission Date: 20220423
  Serious: Yes (Hospitalization)
  Sender: FDA-Public Use
  Company Number: None

PATIENT
  Age: 48 Year
  Sex: Male
  Weight: 116.1 kg

DRUGS (1)
  1. TIANEPTINE SODIUM [Suspect]
     Active Substance: TIANEPTINE SODIUM
     Indication: Pain
     Dosage: FREQUENCY : 4 TIMES A DAY;?
     Route: 048

REACTIONS (4)
  - Intentional product misuse [None]
  - Withdrawal syndrome [None]
  - Nausea [None]
  - Feeling of body temperature change [None]

NARRATIVE: CASE EVENT DATE: 20220321
